FAERS Safety Report 8764078 (Version 4)
Quarter: 2015Q3

REPORT INFORMATION
  Report Type: Spontaneous
  Country: US (occurrence: US)
  Receive Date: 20120831
  Receipt Date: 20150730
  Transmission Date: 20151125
  Serious: Yes (Disabling, Other)
  Sender: FDA-Public Use
  Company Number: US-009507513-1208USA011793

PATIENT
  Sex: Male
  Weight: 83.9 kg

DRUGS (4)
  1. PROPECIA [Suspect]
     Active Substance: FINASTERIDE
     Indication: ALOPECIA
     Dosage: 1 MG, UNKNOWN
     Route: 048
  2. PROSCAR [Suspect]
     Active Substance: FINASTERIDE
     Indication: ALOPECIA
     Dosage: UNK UNK, UNKNOWN
     Route: 048
  3. FINASTERIDE. [Suspect]
     Active Substance: FINASTERIDE
     Indication: ALOPECIA
     Dosage: 5 MG, UNKNOWN
     Route: 048
     Dates: start: 20100607, end: 201108
  4. FINASTERIDE. [Suspect]
     Active Substance: FINASTERIDE
     Indication: ALOPECIA
     Dosage: 5 MG, UNKNOWN
     Route: 048
     Dates: start: 20091208, end: 201108

REACTIONS (36)
  - Injury [Not Recovered/Not Resolved]
  - Benign prostatic hyperplasia [Unknown]
  - Urinary tract obstruction [Unknown]
  - Constipation [Unknown]
  - Bipolar II disorder [Not Recovered/Not Resolved]
  - Panic disorder without agoraphobia [Unknown]
  - Sexual dysfunction [Unknown]
  - Cognitive disorder [Unknown]
  - Anxiety [Unknown]
  - Drug administration error [Unknown]
  - Penile pain [Recovered/Resolved]
  - Back pain [Not Recovered/Not Resolved]
  - Testicular pain [Unknown]
  - Peyronie^s disease [Unknown]
  - Flushing [Unknown]
  - Hypogonadism [Recovering/Resolving]
  - Emotional disorder [Unknown]
  - Organic erectile dysfunction [Recovering/Resolving]
  - Libido decreased [Recovering/Resolving]
  - Drug administration error [Unknown]
  - Tonsillectomy [Unknown]
  - Surgery [Unknown]
  - Insomnia [Unknown]
  - Lower urinary tract symptoms [Unknown]
  - Drug dependence [Unknown]
  - Amnesia [Unknown]
  - Asthma [Unknown]
  - Penis disorder [Recovered/Resolved]
  - Nocturia [Unknown]
  - Ejaculation disorder [Unknown]
  - Endocrine disorder [Unknown]
  - Disturbance in attention [Unknown]
  - Generalised anxiety disorder [Not Recovered/Not Resolved]
  - Drug ineffective [Unknown]
  - Depression [Unknown]
  - Urinary retention [Recovered/Resolved]

NARRATIVE: CASE EVENT DATE: 2007
